FAERS Safety Report 21872864 (Version 1)
Quarter: 2023Q1

REPORT INFORMATION
  Report Type: Spontaneous
  Country: GB (occurrence: GB)
  Receive Date: 20230117
  Receipt Date: 20230117
  Transmission Date: 20230418
  Serious: Yes (Other)
  Sender: FDA-Public Use
  Company Number: GB-MYLANLABS-2022M1149068

PATIENT
  Age: 68 Year
  Sex: Male

DRUGS (1)
  1. CLOZARIL [Suspect]
     Active Substance: CLOZAPINE
     Indication: Schizophrenia
     Dosage: UNK
     Route: 048
     Dates: start: 20221215, end: 20221230

REACTIONS (3)
  - Thrombocytopenia [Recovering/Resolving]
  - Malaise [Unknown]
  - COVID-19 [Unknown]

NARRATIVE: CASE EVENT DATE: 20221225
